FAERS Safety Report 9183555 (Version 1)
Quarter: 2013Q1

REPORT INFORMATION
  Report Type: Spontaneous
  Country: FR (occurrence: FR)
  Receive Date: 20130322
  Receipt Date: 20130322
  Transmission Date: 20140127
  Serious: Yes (Other)
  Sender: FDA-Public Use
  Company Number: FR-CELGENEUS-056-21880-13031934

PATIENT
  Sex: Male

DRUGS (5)
  1. REVLIMID [Suspect]
     Indication: PLASMA CELL MYELOMA
     Dosage: 50 MILLIGRAM
     Route: 048
     Dates: start: 201011, end: 201101
  2. REVLIMID [Suspect]
     Dosage: 10 MILLIGRAM
     Route: 048
     Dates: start: 201201, end: 201206
  3. TERCIAN [Concomitant]
     Indication: DEPRESSION
     Route: 065
  4. EFFEXOR [Concomitant]
     Indication: DEPRESSION
     Route: 065
  5. PERMIXON [Concomitant]
     Indication: PROSTATIC ADENOMA

REACTIONS (1)
  - Colon cancer [Unknown]
